FAERS Safety Report 7588499-3 (Version None)
Quarter: 2011Q3

REPORT INFORMATION
  Report Type: 
  Country: None (occurrence: None)
  Receive Date: 20110705
  Receipt Date: 20110628
  Transmission Date: 20111222
  Serious: Yes (Hospitalization, Other)
  Sender: FDA-Public Use
  Company Number: US-PFIZER INC-2011111816

PATIENT
  Sex: Female

DRUGS (3)
  1. SUTENT [Suspect]
     Dosage: 37.5 MG, 1X/DAY
     Route: 048
     Dates: start: 20110427, end: 20110517
  2. SUTENT [Suspect]
     Indication: METASTATIC RENAL CELL CARCINOMA
     Dosage: 50 MG, 1X/DAY (28DAILY Q 42 DAYS)
     Route: 048
     Dates: start: 20110314, end: 20110412
  3. SUTENT [Suspect]
     Dosage: 25 MG, 1X/DAY, 28 DAYS EVERY 42 DAYS
     Route: 048
     Dates: start: 20110607, end: 20110617

REACTIONS (4)
  - DIARRHOEA [None]
  - DIVERTICULITIS [None]
  - WEIGHT DECREASED [None]
  - DEHYDRATION [None]
